FAERS Safety Report 5825072-9 (Version None)
Quarter: 2008Q3

REPORT INFORMATION
  Report Type: 
  Country: None (occurrence: None)
  Receive Date: 20080729
  Receipt Date: 20080725
  Transmission Date: 20090109
  Serious: Yes (Death, Other)
  Sender: FDA-Public Use
  Company Number: FR-BRISTOL-MYERS SQUIBB COMPANY-14047278

PATIENT
  Age: 71 Year
  Sex: Female

DRUGS (5)
  1. ENDOXAN [Suspect]
     Indication: MULTIPLE MYELOMA
     Dosage: ALSO RECEIVED ON 11-JUN-2007 3GM VIA INTRAVENOUS ONCE
     Route: 042
     Dates: start: 20070710, end: 20070731
  2. ETOPOPHOS PRESERVATIVE FREE [Suspect]
     Indication: MULTIPLE MYELOMA
     Route: 042
     Dates: start: 20070710, end: 20070731
  3. VELCADE [Suspect]
     Indication: MULTIPLE MYELOMA
     Route: 042
     Dates: start: 20070214, end: 20070309
  4. MELPHALAN [Suspect]
     Indication: MULTIPLE MYELOMA
     Route: 042
     Dates: start: 20070326, end: 20070326
  5. DEXAMETHASONE [Suspect]
     Indication: MULTIPLE MYELOMA
     Route: 042
     Dates: start: 20070710, end: 20070731

REACTIONS (5)
  - GUILLAIN-BARRE SYNDROME [None]
  - MULTI-ORGAN FAILURE [None]
  - NEOPLASM PROGRESSION [None]
  - PANCYTOPENIA [None]
  - PSEUDOMONAL SEPSIS [None]
